FAERS Safety Report 15650018 (Version 2)
Quarter: 2019Q1

REPORT INFORMATION
  Report Type: Spontaneous
  Country: US (occurrence: US)
  Receive Date: 20181123
  Receipt Date: 20190226
  Transmission Date: 20190417
  Serious: No
  Sender: FDA-Public Use
  Company Number: US-BRISTOL-MYERS SQUIBB COMPANY-BMS-2018-109866

PATIENT
  Age: 44 Year
  Sex: Female

DRUGS (1)
  1. ELIQUIS [Suspect]
     Active Substance: APIXABAN
     Indication: DEEP VEIN THROMBOSIS
     Dosage: 10 MG, BID (TWO 5MG TABLETS IN THE MORNING AND TWO 5MG TABLETS IN THE EVENING)
     Route: 048
     Dates: start: 2018

REACTIONS (2)
  - Dysgeusia [Unknown]
  - Product use issue [Unknown]
